FAERS Safety Report 17352149 (Version 2)
Quarter: 2020Q2

REPORT INFORMATION
  Report Type: Spontaneous
  Country: US (occurrence: US)
  Receive Date: 20200130
  Receipt Date: 20200421
  Transmission Date: 20200713
  Serious: Yes (Hospitalization)
  Sender: FDA-Public Use
  Company Number: US-INCYTE CORPORATION-2020IN000931

PATIENT

DRUGS (2)
  1. JAKAFI [Suspect]
     Active Substance: RUXOLITINIB
     Dosage: 5 MILLIGRAM, BID
     Route: 048
     Dates: start: 201801
  2. JAKAFI [Suspect]
     Active Substance: RUXOLITINIB
     Indication: MYELOFIBROSIS
     Dosage: 5 MILLIGRAM, BID
     Route: 048
     Dates: start: 201801

REACTIONS (9)
  - Gout [Unknown]
  - Constipation [Recovered/Resolved]
  - Platelet count decreased [Unknown]
  - Blood blister [Unknown]
  - Splenomegaly [Unknown]
  - Localised infection [Not Recovered/Not Resolved]
  - White blood cell count increased [Unknown]
  - Disease susceptibility [Unknown]
  - Contusion [Unknown]

NARRATIVE: CASE EVENT DATE: 20180417
